FAERS Safety Report 11759196 (Version 1)
Quarter: 2015Q4

REPORT INFORMATION
  Report Type: Spontaneous
  Country: US (occurrence: US)
  Receive Date: 20151120
  Receipt Date: 20151120
  Transmission Date: 20160304
  Serious: No
  Sender: FDA-Public Use
  Company Number: US-ELI_LILLY_AND_COMPANY-US201210000176

PATIENT
  Age: 90 Year
  Sex: Female

DRUGS (1)
  1. FORTEO [Suspect]
     Active Substance: TERIPARATIDE
     Indication: OSTEOPOROSIS
     Dosage: 20 UG, QD
     Dates: start: 20120921, end: 20120928

REACTIONS (10)
  - Feeling hot [Unknown]
  - Feeling cold [Unknown]
  - Insomnia [Unknown]
  - Headache [Unknown]
  - Pruritus [Unknown]
  - Middle insomnia [Unknown]
  - Dizziness postural [Unknown]
  - Back pain [Unknown]
  - Abdominal discomfort [Unknown]
  - Chills [Unknown]

NARRATIVE: CASE EVENT DATE: 20120927
